FAERS Safety Report 19166248 (Version 1)
Quarter: 2021Q2

REPORT INFORMATION
  Report Type: Spontaneous
  Country: FR (occurrence: FR)
  Receive Date: 20210422
  Receipt Date: 20210422
  Transmission Date: 20210717
  Serious: Yes (Death)
  Sender: FDA-Public Use
  Company Number: FR-AUROBINDO-AUR-APL-2021-016273

PATIENT
  Age: 60 Year
  Sex: Male

DRUGS (2)
  1. NICARDIPINE [Suspect]
     Active Substance: NICARDIPINE
     Indication: HYPERTENSION
     Dosage: 40 MILLIGRAM, ONCE A DAY
     Route: 065
  2. SODIUM LACTATE. [Interacting]
     Active Substance: SODIUM LACTATE
     Indication: CIRCULATORY COLLAPSE
     Dosage: 500 MILLILITER, TWO TIMES A DAY
     Route: 042

REACTIONS (2)
  - Drug ineffective [Fatal]
  - Drug interaction [Fatal]
